FAERS Safety Report 19351353 (Version 1)
Quarter: 2021Q2

REPORT INFORMATION
  Report Type: Spontaneous
  Country: US (occurrence: US)
  Receive Date: 20210531
  Receipt Date: 20210531
  Transmission Date: 20210717
  Serious: Yes (Other)
  Sender: FDA-Public Use
  Company Number: US-SUNOVION-2021SUN001936

PATIENT
  Age: 64 Year
  Sex: Male

DRUGS (3)
  1. APTIOM [Suspect]
     Active Substance: ESLICARBAZEPINE ACETATE
     Indication: SEIZURE
     Dosage: 200 MG
     Route: 048
  2. APTIOM [Suspect]
     Active Substance: ESLICARBAZEPINE ACETATE
     Dosage: 600 MG, QD
     Route: 048
  3. KEPPRA [Concomitant]
     Active Substance: LEVETIRACETAM
     Dosage: 300 MG

REACTIONS (7)
  - Brain neoplasm [Unknown]
  - Brain operation [Unknown]
  - Stress [Unknown]
  - Seizure [Not Recovered/Not Resolved]
  - Nasopharyngitis [Unknown]
  - Eating disorder [Unknown]
  - Prescribed underdose [Unknown]
